FAERS Safety Report 4590125-2 (Version None)
Quarter: 2005Q1

REPORT INFORMATION
  Report Type: 
  Country: None (occurrence: None)
  Receive Date: 20050217
  Receipt Date: 20050204
  Transmission Date: 20050727
  Serious: Yes (Other)
  Sender: FDA-Public Use
  Company Number: HQWYE145007FEB05

PATIENT
  Age: 39 Year
  Sex: Male

DRUGS (1)
  1. NEORAL [Suspect]
     Indication: PROPHYLAXIS AGAINST TRANSPLANT REJECTION
     Dosage: 150 MG 1X PER 1 DAY, ORAL
     Route: 048
     Dates: start: 20030624, end: 20041210

REACTIONS (2)
  - GRAFT LOSS [None]
  - HAEMODIALYSIS [None]
